FAERS Safety Report 25530578 (Version 1)
Quarter: 2025Q3

REPORT INFORMATION
  Report Type: Spontaneous
  Country: US (occurrence: US)
  Receive Date: 20250708
  Receipt Date: 20250708
  Transmission Date: 20251021
  Serious: No
  Sender: SANOFI AVENTIS
  Company Number: US-SA-2025SA192171

PATIENT
  Sex: Female

DRUGS (3)
  1. DUPIXENT [Suspect]
     Active Substance: DUPILUMAB
     Indication: Asthma
     Dosage: 300 MG, QOW
     Route: 058
     Dates: start: 202312
  2. REBIF [Concomitant]
     Active Substance: INTERFERON BETA-1A
  3. REBIF REBIDOSE [Concomitant]
     Active Substance: INTERFERON BETA-1A

REACTIONS (1)
  - Drug hypersensitivity [Unknown]
